FAERS Safety Report 25057787 (Version 1)
Quarter: 2025Q1

REPORT INFORMATION
  Report Type: Spontaneous
  Country: US (occurrence: None)
  Receive Date: 20250308
  Receipt Date: 20250308
  Transmission Date: 20250409
  Serious: Yes (Other)
  Sender: FDA-CTU
  Company Number: None

PATIENT
  Age: 21 Year
  Sex: Female
  Weight: 41.895 kg

DRUGS (3)
  1. CLINDAMYCIN AND BENZOYL PEROXIDE [Suspect]
     Active Substance: BENZOYL PEROXIDE\CLINDAMYCIN PHOSPHATE
     Indication: Skin bacterial infection
     Route: 061
     Dates: start: 20250307, end: 20250308
  2. ADAPALENE [Suspect]
     Active Substance: ADAPALENE
  3. Olly multivitamin [Concomitant]

REACTIONS (1)
  - Periorbital swelling [None]

NARRATIVE: CASE EVENT DATE: 20250308
